FAERS Safety Report 8008925-5 (Version None)
Quarter: 2011Q4

REPORT INFORMATION
  Report Type: 
  Country: None (occurrence: None)
  Receive Date: 20111227
  Receipt Date: 20111222
  Transmission Date: 20120403
  Serious: Yes (Other)
  Sender: FDA-Public Use
  Company Number: JP-PFIZER INC-2011224700

PATIENT
  Age: 82 Year
  Sex: Male
  Weight: 60 kg

DRUGS (10)
  1. DIFLUCAN [Concomitant]
     Dosage: 100 MG, 2X/DAY
     Route: 048
     Dates: start: 20091225
  2. MAGNESIUM OXIDE [Concomitant]
     Dosage: 0.6 G, 2X/DAY
     Route: 048
     Dates: start: 20091225
  3. ALDACTONE [Concomitant]
     Dosage: 25 MG, 1X/DAY
     Route: 048
     Dates: start: 20091225
  4. LYRICA [Suspect]
     Indication: PAIN IN EXTREMITY
     Dosage: 75 MG, 2X/DAY
     Route: 048
     Dates: start: 20110913, end: 20110920
  5. PANTOSIN [Concomitant]
     Dosage: 300 MG, 2X/DAY
     Route: 048
     Dates: start: 20091225
  6. GOSHAJINKIGAN [Concomitant]
     Dosage: 2.5 G, 3X/DAY
     Route: 048
     Dates: start: 20101026
  7. MUCOSTA [Concomitant]
     Dosage: 100 MG, 2X/DAY
     Route: 048
     Dates: start: 20101022
  8. SULFAMETHOXAZOLE AND TRIMETHOPRIM [Concomitant]
     Dosage: 4 G, 1X/DAY
     Route: 048
     Dates: start: 20091225
  9. OMEPRAZOLE [Concomitant]
     Dosage: 20 MG, 1X/DAY
     Route: 048
     Dates: start: 20091225
  10. CELECOXIB [Concomitant]
     Dosage: 100 MG, 2X/DAY
     Route: 048
     Dates: start: 20101022

REACTIONS (1)
  - RENAL IMPAIRMENT [None]
